FAERS Safety Report 18363128 (Version 4)
Quarter: 2021Q4

REPORT INFORMATION
  Report Type: Report from Study
  Country: CA (occurrence: CA)
  Receive Date: 20201008
  Receipt Date: 20211125
  Transmission Date: 20220303
  Serious: Yes (Other)
  Sender: FDA-Public Use
  Company Number: NVSC2020CA269653

PATIENT
  Sex: Female

DRUGS (3)
  1. COSENTYX [Suspect]
     Active Substance: SECUKINUMAB
     Indication: Psoriasis
     Dosage: 300 MG, EVERY 3 WEEKS
     Route: 058
     Dates: start: 20190930, end: 20210811
  2. DICLOFENAC [Concomitant]
     Active Substance: DICLOFENAC
     Indication: Product used for unknown indication
     Dosage: UNK
     Route: 065
  3. LEFLUNOMIDE [Concomitant]
     Active Substance: LEFLUNOMIDE
     Indication: Product used for unknown indication
     Dosage: UNK
     Route: 048

REACTIONS (7)
  - Rheumatoid arthritis [Unknown]
  - Psoriatic arthropathy [Unknown]
  - General physical health deterioration [Unknown]
  - Pain [Unknown]
  - Psoriasis [Unknown]
  - Drug ineffective [Unknown]
  - Product prescribing error [Unknown]
